FAERS Safety Report 9280650 (Version 3)
Quarter: 2013Q2

REPORT INFORMATION
  Report Type: Spontaneous
  Country: US (occurrence: US)
  Receive Date: 20130509
  Receipt Date: 20130621
  Transmission Date: 20140414
  Serious: No
  Sender: FDA-Public Use
  Company Number: US-PFIZER INC-2013139043

PATIENT
  Age: 83 Year
  Sex: Female

DRUGS (3)
  1. XALATAN [Suspect]
     Indication: OPEN ANGLE GLAUCOMA
     Dosage: UNK
     Dates: start: 20090107
  2. XALATAN [Suspect]
     Dosage: 1 DROP BOTH EYES EVERY NIGHT
     Dates: start: 20120105
  3. ALPHAGAN [Concomitant]
     Indication: GLAUCOMA
     Dosage: BID, OD
     Dates: start: 20120406

REACTIONS (1)
  - Dysphonia [Unknown]
